FAERS Safety Report 4612523-0 (Version None)
Quarter: 2005Q1

REPORT INFORMATION
  Report Type: 
  Country: None (occurrence: None)
  Receive Date: 20050316
  Receipt Date: 20050316
  Transmission Date: 20050727
  Serious: Yes (Other)
  Sender: FDA-Public Use
  Company Number: None

PATIENT
  Sex: Female
  Weight: 127.0072 kg

DRUGS (3)
  1. FENTANYL [Suspect]
     Indication: BACK PAIN
     Dosage: 1 PATCH Q 3 DAYS
     Dates: start: 20050115
  2. FENTANYL [Suspect]
     Indication: RADICULOPATHY
     Dosage: 1 PATCH Q 3 DAYS
     Dates: start: 20050115
  3. FENTANYL [Suspect]
     Dosage: 1 PATCH Q 3 DAYS
     Dates: start: 20050314

REACTIONS (2)
  - DRUG EFFECT DECREASED [None]
  - PHARMACEUTICAL PRODUCT COMPLAINT [None]
